FAERS Safety Report 6384822-6 (Version None)
Quarter: 2009Q4

REPORT INFORMATION
  Report Type: 
  Country: None (occurrence: None)
  Receive Date: 20091001
  Receipt Date: 20090917
  Transmission Date: 20100525
  Serious: Yes (Death)
  Sender: FDA-Public Use
  Company Number: US-ELI_LILLY_AND_COMPANY-US200909007102

PATIENT

DRUGS (2)
  1. GEMCITABINE HCL [Suspect]
     Indication: ADENOCARCINOMA PANCREAS
     Dosage: 2000 MG, WEEKLY (1/W) FOR 3 WEEKS IN 4 WEEK CYCLE
     Route: 042
  2. BEVACIZUMAB [Concomitant]
     Indication: ADENOCARCINOMA PANCREAS
     Dosage: 5 MG/KG, EVERY 2 WEEKS IN 4 WEEK CYCLE

REACTIONS (1)
  - LARGE INTESTINE PERFORATION [None]
